FAERS Safety Report 11278288 (Version 1)
Quarter: 2015Q3

REPORT INFORMATION
  Report Type: Spontaneous
  Country: US (occurrence: US)
  Receive Date: 20150717
  Receipt Date: 20150717
  Transmission Date: 20151125
  Serious: Yes (Other)
  Sender: FDA-Public Use
  Company Number: US-HOSPIRA-2933653

PATIENT
  Age: 40 Year
  Sex: Male

DRUGS (6)
  1. LIDOCAINE HYDROCHLORIDE. [Concomitant]
     Active Substance: LIDOCAINE HYDROCHLORIDE
     Indication: KNEE OPERATION
     Dates: start: 20140102
  2. MARCAINE [Suspect]
     Active Substance: BUPIVACAINE HYDROCHLORIDE
     Indication: NERVE BLOCK
     Dates: start: 20140102
  3. MARCAINE [Suspect]
     Active Substance: BUPIVACAINE HYDROCHLORIDE
     Indication: KNEE OPERATION
     Dates: start: 20140102
  4. PROPOFOL. [Concomitant]
     Active Substance: PROPOFOL
     Indication: NERVE BLOCK
     Dates: start: 20140102
  5. LIDOCAINE HYDROCHLORIDE. [Concomitant]
     Active Substance: LIDOCAINE HYDROCHLORIDE
     Indication: NERVE BLOCK
     Dates: start: 20140102
  6. PROPOFOL. [Concomitant]
     Active Substance: PROPOFOL
     Indication: KNEE OPERATION
     Dates: start: 20140102

REACTIONS (7)
  - Tension [Not Recovered/Not Resolved]
  - Product quality issue [Not Recovered/Not Resolved]
  - Nerve injury [Not Recovered/Not Resolved]
  - Poor quality drug administered [Not Recovered/Not Resolved]
  - Asthenia [Not Recovered/Not Resolved]
  - Balance disorder [Not Recovered/Not Resolved]
  - Blood aluminium increased [Not Recovered/Not Resolved]

NARRATIVE: CASE EVENT DATE: 2014
